FAERS Safety Report 9189566 (Version 2)
Quarter: 2013Q3

REPORT INFORMATION
  Report Type: Report from Study
  Country: DE (occurrence: DE)
  Receive Date: 20130326
  Receipt Date: 20130722
  Transmission Date: 20140515
  Serious: Yes (Hospitalization)
  Sender: FDA-Public Use
  Company Number: DE-ELI_LILLY_AND_COMPANY-DE201303005200

PATIENT
  Sex: Male

DRUGS (7)
  1. TERIPARATIDE [Suspect]
     Indication: OSTEOPOROSIS
     Dosage: UNK, QD
     Route: 058
     Dates: start: 20121022
  2. MORFINE [Concomitant]
     Dosage: UNK, UNKNOWN
     Route: 065
  3. GABAPENTIN [Concomitant]
     Dosage: UNK, UNKNOWN
     Route: 065
  4. VOTUM [Concomitant]
     Dosage: UNK, UNKNOWN
     Route: 065
  5. PREDNISOLONE [Concomitant]
     Dosage: 4 MG, QD
     Route: 065
  6. VIGANTOLETTEN [Concomitant]
     Dosage: UNK, UNKNOWN
     Route: 065
  7. CALCIMAGON                         /00751501/ [Concomitant]
     Dosage: UNK, UNKNOWN
     Route: 065

REACTIONS (1)
  - Ligament rupture [Recovered/Resolved]
